FAERS Safety Report 4732295-9 (Version None)
Quarter: 2005Q3

REPORT INFORMATION
  Report Type: 
  Country: None (occurrence: None)
  Receive Date: 20050726
  Receipt Date: 20041229
  Transmission Date: 20060218
  Serious: Yes (Other)
  Sender: FDA-Public Use
  Company Number: 05NET0013

PATIENT
  Age: 82 Year
  Sex: Female

DRUGS (2)
  1. AGGRASTAT [Suspect]
     Indication: ACUTE CORONARY SYNDROME
  2. ACENOCOUMAROL (ACENOCOUMAROL) [Concomitant]

REACTIONS (1)
  - THROMBOCYTOPENIA [None]
